FAERS Safety Report 17897885 (Version 1)
Quarter: 2020Q2

REPORT INFORMATION
  Report Type: Report from Study
  Country: US (occurrence: US)
  Receive Date: 20200616
  Receipt Date: 20200616
  Transmission Date: 20200714
  Serious: Yes (Other)
  Sender: FDA-Public Use
  Company Number: US-ROCHE-2615999

PATIENT

DRUGS (1)
  1. TOCILIZUMAB. [Suspect]
     Active Substance: TOCILIZUMAB
     Indication: CYTOKINE RELEASE SYNDROME
     Route: 065

REACTIONS (15)
  - Cytomegalovirus infection [Unknown]
  - Coronavirus infection [Unknown]
  - Parainfluenzae virus infection [Unknown]
  - Rhinovirus infection [Unknown]
  - Epstein-Barr virus infection [Unknown]
  - Parvovirus B19 infection [Unknown]
  - Bacterial infection [Unknown]
  - Herpes simplex [Unknown]
  - Metapneumovirus infection [Unknown]
  - Respiratory syncytial virus infection [Unknown]
  - Genitourinary tract infection [Unknown]
  - Human herpesvirus 6 infection [Unknown]
  - BK virus infection [Unknown]
  - Fungal infection [Unknown]
  - Influenza [Unknown]
